FAERS Safety Report 8426986-6 (Version None)
Quarter: 2012Q2

REPORT INFORMATION
  Report Type: 
  Country: None (occurrence: None)
  Receive Date: 20120611
  Receipt Date: 20120604
  Transmission Date: 20120825
  Serious: Yes (Hospitalization)
  Sender: FDA-Public Use
  Company Number: FR-JNJFOC-20120603833

PATIENT
  Age: 6 Decade
  Sex: Male

DRUGS (2)
  1. STELARA [Suspect]
     Indication: NAIL PSORIASIS
     Dosage: 2ND INJECTION
     Route: 058
     Dates: start: 20111109
  2. STELARA [Suspect]
     Dosage: 1ST INJECTION
     Route: 058
     Dates: start: 20111005

REACTIONS (2)
  - ANAL ABSCESS [None]
  - OFF LABEL USE [None]
